FAERS Safety Report 9173290 (Version 1)
Quarter: 2013Q1

REPORT INFORMATION
  Report Type: Spontaneous
  Country: FR (occurrence: None)
  Receive Date: 20130314
  Receipt Date: 20130314
  Transmission Date: 20140127
  Serious: Yes (Hospitalization)
  Sender: FDA-Public Use
  Company Number: IMP_06601_2013

PATIENT
  Age: 70 Year
  Sex: Female
  Weight: 65 kg

DRUGS (5)
  1. METFORMIN (METFORMIN) [Suspect]
     Indication: PRODUCT USED FOR UNKNOWN INDICATION
  2. INDAPAMIDE [Suspect]
     Indication: PRODUCT USED FOR UNKNOWN INDICATION
     Dosage: 2.5MG, /DAY)
  3. KETOPROFEN [Concomitant]
  4. ACETAMINOPHEN [Concomitant]
  5. MORPHINE [Concomitant]

REACTIONS (10)
  - Hypoglycaemia [None]
  - Hypothermia [None]
  - Vomiting [None]
  - Tachycardia [None]
  - Hypotension [None]
  - Renal failure acute [None]
  - Lactic acidosis [None]
  - Respiratory distress [None]
  - Dialysis [None]
  - Post procedural complication [None]
